FAERS Safety Report 25260305 (Version 1)
Quarter: 2025Q2

REPORT INFORMATION
  Report Type: Spontaneous
  Country: FR (occurrence: FR)
  Receive Date: 20250501
  Receipt Date: 20250501
  Transmission Date: 20250716
  Serious: Yes (Life-Threatening)
  Sender: ALEXION PHARMACEUTICALS
  Company Number: None

PATIENT
  Age: 68 Year
  Weight: 63 kg

DRUGS (6)
  1. ESOMEPRAZOLE [Suspect]
     Active Substance: ESOMEPRAZOLE
  2. ARIPIPRAZOLE [Suspect]
     Active Substance: ARIPIPRAZOLE
  3. BISOPROLOL [Suspect]
     Active Substance: BISOPROLOL
  4. CLOZAPINE [Suspect]
     Active Substance: CLOZAPINE
  5. MIDODRINE [Suspect]
     Active Substance: MIDODRINE
  6. ASCORBIC ACID\FERROUS SULFATE [Suspect]
     Active Substance: ASCORBIC ACID\FERROUS SULFATE

REACTIONS (4)
  - Somnolence [Recovered/Resolved]
  - Disturbance in attention [Recovered/Resolved]
  - Hyperglycaemia [Recovered/Resolved]
  - Wrong patient received product [Recovered/Resolved]
